FAERS Safety Report 4844814-2 (Version None)
Quarter: 2005Q4

REPORT INFORMATION
  Report Type: 
  Country: None (occurrence: None)
  Receive Date: 20051205
  Receipt Date: 20051123
  Transmission Date: 20060501
  Serious: Yes (Hospitalization)
  Sender: FDA-Public Use
  Company Number: US-JNJFOC-20051106563

PATIENT
  Sex: Male
  Weight: 149.69 kg

DRUGS (2)
  1. FENTANYL [Suspect]
     Route: 062
     Dates: start: 20050201
  2. FENTANYL [Suspect]
     Route: 062
     Dates: start: 20050201

REACTIONS (9)
  - DEPRESSION [None]
  - DYSPNOEA [None]
  - FUNGAL INFECTION [None]
  - HYPERHIDROSIS [None]
  - INSOMNIA [None]
  - NERVOUSNESS [None]
  - POST-TRAUMATIC STRESS DISORDER [None]
  - SKIN ODOUR ABNORMAL [None]
  - THERAPEUTIC RESPONSE DECREASED [None]
